FAERS Safety Report 8176333-2 (Version None)
Quarter: 2012Q1

REPORT INFORMATION
  Report Type: 
  Country: None (occurrence: None)
  Receive Date: 20120301
  Receipt Date: 20120217
  Transmission Date: 20120608
  Serious: Yes (Other)
  Sender: FDA-Public Use
  Company Number: CA-JNJFOC-20120210236

PATIENT
  Sex: Female
  Weight: 82.3 kg

DRUGS (9)
  1. ACETAMINOPHEN [Concomitant]
     Route: 065
  2. AMINOSALICYLIC ACID [Concomitant]
     Route: 065
  3. PREDNISONE TAB [Concomitant]
     Route: 065
  4. CALCIUM [Concomitant]
     Route: 065
  5. DOXYCYCLINE [Concomitant]
     Route: 065
  6. IMURAN [Concomitant]
     Route: 065
  7. REMICADE [Suspect]
     Indication: CROHN'S DISEASE
     Route: 042
     Dates: start: 20111107
  8. VITAMIN D [Concomitant]
     Route: 065
  9. METOCLOPRAMIDE [Concomitant]
     Route: 065

REACTIONS (1)
  - RECTAL HAEMORRHAGE [None]
